FAERS Safety Report 6368068-3 (Version None)
Quarter: 2009Q3

REPORT INFORMATION
  Report Type: 
  Country: None (occurrence: None)
  Receive Date: 20090922
  Receipt Date: 20090914
  Transmission Date: 20100115
  Serious: Yes (Other)
  Sender: FDA-Public Use
  Company Number: TR-ROCHE-656603

PATIENT
  Age: 66 Year
  Sex: Female

DRUGS (4)
  1. CAPECITABINE [Suspect]
     Indication: BREAST CANCER METASTATIC
     Route: 065
  2. IXEMPRA KIT [Suspect]
     Indication: BREAST CANCER METASTATIC
     Dosage: INTERRUPTED AFTER FIFTH COURSE
     Route: 048
     Dates: start: 20080601
  3. IXEMPRA KIT [Suspect]
     Route: 048
     Dates: end: 20090501
  4. AROMASIN [Suspect]
     Indication: BREAST CANCER METASTATIC
     Route: 065

REACTIONS (4)
  - BONE MARROW FAILURE [None]
  - FEBRILE NEUTROPENIA [None]
  - NEUROPATHY PERIPHERAL [None]
  - PLEURAL EFFUSION [None]
